FAERS Safety Report 21009962 (Version 1)
Quarter: 2022Q2

REPORT INFORMATION
  Report Type: Spontaneous
  Country: US (occurrence: US)
  Receive Date: 20220627
  Receipt Date: 20220627
  Transmission Date: 20220720
  Serious: No
  Sender: FDA-Public Use
  Company Number: US-DENDREON PHARMACEUTICAL LLC-2021DEN000263

PATIENT

DRUGS (6)
  1. PROVENGE [Suspect]
     Active Substance: SIPULEUCEL-T
     Indication: Prostate cancer metastatic
     Dosage: UNK
     Dates: start: 2016, end: 2016
  2. RUCAPARIB [Suspect]
     Active Substance: RUCAPARIB
  3. CABAZITAXEL [Suspect]
     Active Substance: CABAZITAXEL
  4. DOCETAXEL [Suspect]
     Active Substance: DOCETAXEL
  5. ABIRATERONE ACETATE [Suspect]
     Active Substance: ABIRATERONE ACETATE
  6. ENZALUTAMIDE [Suspect]
     Active Substance: ENZALUTAMIDE

REACTIONS (1)
  - Disease progression [Unknown]
